FAERS Safety Report 5020270-9 (Version None)
Quarter: 2006Q2

REPORT INFORMATION
  Report Type: 
  Country: None (occurrence: None)
  Receive Date: 20060602
  Receipt Date: 20060515
  Transmission Date: 20061013
  Serious: No
  Sender: FDA-Public Use
  Company Number: DE200603005715

PATIENT
  Age: 29 Year
  Sex: Male

DRUGS (2)
  1. CYMBALTA [Suspect]
     Indication: DEPRESSION
     Dosage: 60 MG, DAILY (1/D), ORAL
     Route: 048
     Dates: start: 20050923, end: 20051012
  2. NEUROCIL (LEVOMEPROMAZINE MALEATE) [Concomitant]

REACTIONS (3)
  - DRUG INTERACTION [None]
  - HEPATIC STEATOSIS [None]
  - HEPATITIS [None]
